FAERS Safety Report 25464003 (Version 1)
Quarter: 2025Q2

REPORT INFORMATION
  Report Type: Spontaneous
  Country: CN (occurrence: CN)
  Receive Date: 20250621
  Receipt Date: 20250621
  Transmission Date: 20250717
  Serious: Yes (Other)
  Sender: ACCORD
  Company Number: CN-MLMSERVICE-20250605-PI528924-00082-4

PATIENT
  Age: 73 Year
  Sex: Male

DRUGS (7)
  1. CARBOPLATIN [Suspect]
     Active Substance: CARBOPLATIN
     Indication: Squamous cell carcinoma of lung
     Dosage: 500 MG ON D1 EVERY 3 WEEKS (Q3W)
     Dates: start: 20230314, end: 20230314
  2. TISLELIZUMAB [Suspect]
     Active Substance: TISLELIZUMAB
     Indication: Squamous cell carcinoma of lung
     Dosage: 200 MG ON D2 EVERY 3 WEEKS (Q3W) AND 200 MG ON D0 EVERY 3 WEEKS (Q3W)
     Dates: start: 20230314, end: 20230516
  3. PACLITAXEL [Suspect]
     Active Substance: PACLITAXEL
     Indication: Squamous cell carcinoma of lung
     Dosage: 240 MG ON D1 EVERY 3 WEEKS (Q3W)
     Dates: start: 20230314, end: 20230314
  4. CARBOPLATIN [Suspect]
     Active Substance: CARBOPLATIN
     Indication: Squamous cell carcinoma of lung
     Dosage: 150 MG ON D2 EVERY 3 WEEKS (Q3W)
     Dates: start: 20230418, end: 20230516
  5. CARBOPLATIN [Suspect]
     Active Substance: CARBOPLATIN
     Indication: Squamous cell carcinoma of lung
     Dosage: 100 MG ON D3-5 EVERY 3 WEEKS (Q3W)
     Dates: start: 20230418, end: 20230516
  6. PACLITAXEL [Suspect]
     Active Substance: PACLITAXEL
     Indication: Squamous cell carcinoma of lung
     Dosage: 120 MG ON D1 EVERY 3 WEEKS (Q3W)
     Dates: start: 20230418, end: 20230516
  7. PACLITAXEL [Suspect]
     Active Substance: PACLITAXEL
     Indication: Squamous cell carcinoma of lung
     Dosage: 90 MG ON D8 EVERY 3 WEEKS (Q3W)
     Dates: start: 20230418, end: 20230516

REACTIONS (4)
  - Acinetobacter bacteraemia [Recovered/Resolved]
  - Pantoea agglomerans infection [Recovered/Resolved]
  - Staphylococcal bacteraemia [Recovered/Resolved]
  - Herpes zoster [Recovering/Resolving]

NARRATIVE: CASE EVENT DATE: 20230501
